FAERS Safety Report 11827088 (Version 1)
Quarter: 2015Q4

REPORT INFORMATION
  Report Type: Spontaneous
  Country: US (occurrence: US)
  Receive Date: 20151211
  Receipt Date: 20151211
  Transmission Date: 20160305
  Serious: Yes (Hospitalization)
  Sender: FDA-Public Use
  Company Number: US-BEH-2015056452

PATIENT
  Sex: Female
  Weight: 92 kg

DRUGS (31)
  1. LIDOCAINE. [Concomitant]
     Active Substance: LIDOCAINE
  2. SODIUM CHLORIDE. [Concomitant]
     Active Substance: SODIUM CHLORIDE
  3. ALLEGRA [Concomitant]
     Active Substance: FEXOFENADINE HYDROCHLORIDE
  4. BUTRANS [Concomitant]
     Active Substance: BUPRENORPHINE
  5. PROPAFENONE. [Concomitant]
     Active Substance: PROPAFENONE
  6. MEDROL [Concomitant]
     Active Substance: METHYLPREDNISOLONE
  7. PREMARIN [Concomitant]
     Active Substance: ESTROGENS, CONJUGATED
  8. TRIAMETRENE-HCTZ [Concomitant]
  9. KLOR-CON [Concomitant]
     Active Substance: POTASSIUM CHLORIDE
  10. PRIVIGEN [Suspect]
     Active Substance: HUMAN IMMUNOGLOBULIN G
     Indication: HYPOGAMMAGLOBULINAEMIA
     Route: 042
  11. ACETAMINOPHEN. [Concomitant]
     Active Substance: ACETAMINOPHEN
  12. AMBIEN [Concomitant]
     Active Substance: ZOLPIDEM TARTRATE
  13. DIPHENHYDRAMINE. [Concomitant]
     Active Substance: DIPHENHYDRAMINE
  14. HEPARIN [Concomitant]
     Active Substance: HEPARIN SODIUM
  15. CYMBALTA [Concomitant]
     Active Substance: DULOXETINE HYDROCHLORIDE
  16. PRIVIGEN [Suspect]
     Active Substance: HUMAN IMMUNOGLOBULIN G
     Indication: HYPOGAMMAGLOBULINAEMIA
     Route: 042
  17. NORMAL SALINE [Concomitant]
     Active Substance: SODIUM CHLORIDE
  18. CUBICIN [Concomitant]
     Active Substance: DAPTOMYCIN
  19. OXYCODONE [Concomitant]
     Active Substance: OXYCODONE
  20. METFORMIN [Concomitant]
     Active Substance: METFORMIN HYDROCHLORIDE
  21. AMIKACIN [Concomitant]
     Active Substance: AMIKACIN
  22. TOBRAMYCIN. [Concomitant]
     Active Substance: TOBRAMYCIN
  23. INVANZ [Concomitant]
     Active Substance: ERTAPENEM SODIUM
  24. COUMADIN [Concomitant]
     Active Substance: WARFARIN SODIUM
  25. ADCIRCA [Concomitant]
     Active Substance: TADALAFIL
  26. PRIVIGEN [Suspect]
     Active Substance: HUMAN IMMUNOGLOBULIN G
     Indication: IMMUNODEFICIENCY COMMON VARIABLE
     Route: 042
  27. TOPROL XL [Concomitant]
     Active Substance: METOPROLOL SUCCINATE
  28. EPIPEN [Concomitant]
     Active Substance: EPINEPHRINE
  29. AMLODIPINE BESYLATE. [Concomitant]
     Active Substance: AMLODIPINE BESYLATE
  30. NEXIUM [Concomitant]
     Active Substance: ESOMEPRAZOLE MAGNESIUM
  31. LEVOXYL [Concomitant]
     Active Substance: LEVOTHYROXINE SODIUM

REACTIONS (3)
  - Sepsis [Unknown]
  - Urinary tract infection [Unknown]
  - Inappropriate schedule of drug administration [Unknown]
